FAERS Safety Report 25390522 (Version 1)
Quarter: 2025Q2

REPORT INFORMATION
  Report Type: Spontaneous
  Country: US (occurrence: US)
  Receive Date: 20250603
  Receipt Date: 20250603
  Transmission Date: 20250717
  Serious: No
  Sender: ALEXION PHARMACEUTICALS
  Company Number: US-AstraZeneca-2023-36328

PATIENT

DRUGS (1)
  1. SYMBICORT [Suspect]
     Active Substance: BUDESONIDE\FORMOTEROL FUMARATE DIHYDRATE
     Dosage: 80 MICROGRAM, Q12H

REACTIONS (5)
  - Incorrect dose administered by device [Unknown]
  - Device use issue [Unknown]
  - Intentional product misuse [Unknown]
  - Product use issue [Unknown]
  - Device malfunction [Unknown]
